FAERS Safety Report 15704461 (Version 1)
Quarter: 2018Q4

REPORT INFORMATION
  Report Type: Spontaneous
  Country: US (occurrence: US)
  Receive Date: 20181210
  Receipt Date: 20181210
  Transmission Date: 20190205
  Serious: No
  Sender: FDA-Public Use
  Company Number: US-SUNOVION-2018SUN004777

PATIENT
  Sex: Female
  Weight: 76.19 kg

DRUGS (1)
  1. LATUDA [Suspect]
     Active Substance: LURASIDONE HYDROCHLORIDE
     Indication: BIPOLAR DISORDER
     Dosage: UNK UNK, QD
     Route: 048

REACTIONS (3)
  - Muscle twitching [Unknown]
  - Restlessness [Unknown]
  - Nausea [Unknown]
